APPROVED DRUG PRODUCT: CEFOXITIN
Active Ingredient: CEFOXITIN SODIUM
Strength: EQ 10GM BASE/VIAL
Dosage Form/Route: INJECTABLE;INJECTION
Application: A065464 | Product #001
Applicant: ACS DOBFAR SPA
Approved: Aug 31, 2011 | RLD: No | RS: No | Type: DISCN